FAERS Safety Report 11070064 (Version 2)
Quarter: 2015Q3

REPORT INFORMATION
  Report Type: Spontaneous
  Country: JP (occurrence: JP)
  Receive Date: 20150427
  Receipt Date: 20150702
  Transmission Date: 20151125
  Serious: Yes (Hospitalization, Other)
  Sender: FDA-Public Use
  Company Number: JP-GLAXOSMITHKLINE-JP2015JPN054997

PATIENT
  Age: 71 Year
  Sex: Female
  Weight: 35 kg

DRUGS (3)
  1. SUNITINIB MALATE. [Concomitant]
     Active Substance: SUNITINIB MALATE
     Dosage: UNK
  2. VOTRIENT [Suspect]
     Active Substance: PAZOPANIB HYDROCHLORIDE
     Indication: RENAL CANCER STAGE IV
     Dosage: 400 MG, 1D
     Route: 048
  3. VOTRIENT [Suspect]
     Active Substance: PAZOPANIB HYDROCHLORIDE
     Dosage: 200 MG, QD
     Route: 048
     Dates: start: 20140707

REACTIONS (5)
  - Altered state of consciousness [Recovering/Resolving]
  - Cerebral infarction [Recovering/Resolving]
  - Faeces discoloured [Unknown]
  - Diarrhoea [Recovering/Resolving]
  - Malaise [Unknown]

NARRATIVE: CASE EVENT DATE: 20140713
